FAERS Safety Report 13673750 (Version 1)
Quarter: 2017Q2

REPORT INFORMATION
  Report Type: Spontaneous
  Country: US (occurrence: US)
  Receive Date: 20170621
  Receipt Date: 20170621
  Transmission Date: 20170830
  Serious: Yes (Hospitalization)
  Sender: FDA-Public Use
  Company Number: US-LPDUSPRD-20170793

PATIENT
  Age: 55 Year
  Sex: Male

DRUGS (2)
  1. PHENYLEPHRINE HCL [Suspect]
     Active Substance: PHENYLEPHRINE HYDROCHLORIDE
     Dosage: DOSE NOT PROVIDED
     Route: 042
  2. VERAPAMIL [Suspect]
     Active Substance: VERAPAMIL HYDROCHLORIDE
     Dosage: DOSE NOT PROVIDED
     Route: 013

REACTIONS (4)
  - Generalised tonic-clonic seizure [Recovered/Resolved]
  - Posterior reversible encephalopathy syndrome [Unknown]
  - Mental status changes [Recovered/Resolved]
  - Vasospasm [Unknown]
